FAERS Safety Report 6338574-6 (Version None)
Quarter: 2009Q3

REPORT INFORMATION
  Report Type: 
  Country: None (occurrence: None)
  Receive Date: 20090903
  Receipt Date: 20070726
  Transmission Date: 20100115
  Serious: Yes (Hospitalization, Other)
  Sender: FDA-Public Use
  Company Number: US-ASTRAZENECA-2006UW25263

PATIENT
  Age: 17722 Day
  Sex: Male
  Weight: 111.6 kg

DRUGS (13)
  1. SEROQUEL [Suspect]
     Indication: BIPOLAR DISORDER
     Route: 048
     Dates: start: 20000101
  2. SEROQUEL [Suspect]
     Dosage: 25MG-200MG
     Route: 048
     Dates: start: 20020531
  3. ATIVAN [Concomitant]
     Indication: ANXIETY
     Route: 048
     Dates: start: 20001204
  4. HYDROCODONE BITARTRATE + ACETAMINOPHEN [Concomitant]
     Dosage: 5MG AND 500MG
     Route: 048
     Dates: start: 20030705
  5. NORVASC [Concomitant]
     Dosage: 5MG-10MG
     Route: 048
     Dates: start: 20030707
  6. EFFEXOR [Concomitant]
     Route: 048
     Dates: start: 20000523
  7. AMBIEN [Concomitant]
     Route: 048
     Dates: start: 20030707
  8. LISINOPRIL [Concomitant]
     Route: 048
     Dates: start: 20050714
  9. HYDROCHLOROTHIAZIDE [Concomitant]
     Route: 048
     Dates: start: 20050714
  10. FOLIC ACID [Concomitant]
     Route: 048
     Dates: start: 20050127
  11. TEGRETOL [Concomitant]
     Route: 048
     Dates: start: 20000523
  12. INDERAL [Concomitant]
     Route: 048
     Dates: start: 20000523
  13. LITHIUM CARBONATE [Concomitant]
     Route: 048
     Dates: start: 20030521

REACTIONS (6)
  - DIABETIC COMA [None]
  - DIABETIC HYPEROSMOLAR COMA [None]
  - HYPERGLYCAEMIA [None]
  - RESPIRATORY FAILURE [None]
  - TYPE 1 DIABETES MELLITUS [None]
  - TYPE 2 DIABETES MELLITUS [None]
